FAERS Safety Report 5782055-5 (Version None)
Quarter: 2008Q2

REPORT INFORMATION
  Report Type: 
  Country: None (occurrence: None)
  Receive Date: 20080623
  Receipt Date: 20080611
  Transmission Date: 20081010
  Serious: Yes (Other)
  Sender: FDA-Public Use
  Company Number: DE-ELI_LILLY_AND_COMPANY-DE200805006146

PATIENT
  Sex: Female
  Weight: 78 kg

DRUGS (3)
  1. STRATTERA [Suspect]
     Indication: ATTENTION DEFICIT/HYPERACTIVITY DISORDER
     Dosage: 60 MG, DAILY (1/D)
     Route: 048
     Dates: start: 20050221
  2. STRATTERA [Suspect]
     Dosage: 25 MG, DAILY (1/D)
     Route: 048
     Dates: end: 20080524
  3. RITALIN LA [Concomitant]
     Indication: ATTENTION DEFICIT/HYPERACTIVITY DISORDER
     Dosage: 60 MG, DAILY (1/D)
     Route: 048

REACTIONS (6)
  - AGGRESSION [None]
  - BORDERLINE PERSONALITY DISORDER [None]
  - COGNITIVE DISORDER [None]
  - EMOTIONAL DISORDER [None]
  - SELF INJURIOUS BEHAVIOUR [None]
  - SUICIDAL IDEATION [None]
